FAERS Safety Report 18189947 (Version 1)
Quarter: 2020Q3

REPORT INFORMATION
  Report Type: Spontaneous
  Country: US (occurrence: US)
  Receive Date: 20200824
  Receipt Date: 20200824
  Transmission Date: 20201103
  Serious: Yes (Death, Other)
  Sender: FDA-Public Use
  Company Number: US-GILEAD-2020-0491622

PATIENT
  Age: 52 Year
  Sex: Female
  Weight: 134 kg

DRUGS (2)
  1. REMDESIVIR. [Suspect]
     Active Substance: REMDESIVIR
     Indication: COVID-19 PNEUMONIA
     Dosage: 200 MG, ONCE
     Route: 040
     Dates: start: 20200810, end: 20200810
  2. REMDESIVIR. [Suspect]
     Active Substance: REMDESIVIR
     Indication: COVID-19
     Dosage: 100 MG, QD
     Route: 040
     Dates: start: 20200811, end: 20200814

REACTIONS (9)
  - Cardio-respiratory arrest [Fatal]
  - Withdrawal of life support [Fatal]
  - Acute respiratory failure [Unknown]
  - Ventricular fibrillation [Unknown]
  - Cardiogenic shock [Fatal]
  - Endotracheal intubation complication [Unknown]
  - Multiple organ dysfunction syndrome [Unknown]
  - Septic shock [Fatal]
  - Bacterial colitis [Unknown]

NARRATIVE: CASE EVENT DATE: 20200813
